FAERS Safety Report 5522430-7 (Version None)
Quarter: 2007Q4

REPORT INFORMATION
  Report Type: 
  Country: None (occurrence: None)
  Receive Date: 20071120
  Receipt Date: 20071109
  Transmission Date: 20080405
  Serious: Yes (Other)
  Sender: FDA-Public Use
  Company Number: GR-PFIZER INC-2007095506

PATIENT
  Age: 5 Year
  Sex: Male

DRUGS (1)
  1. ZITHROMAX [Suspect]
     Indication: TONSILLITIS
     Route: 048
     Dates: start: 20071001, end: 20071001

REACTIONS (2)
  - NEUTROPENIA [None]
  - WHITE BLOOD CELL COUNT DECREASED [None]
